FAERS Safety Report 18306668 (Version 1)
Quarter: 2020Q3

REPORT INFORMATION
  Report Type: Other
  Country: CA (occurrence: CA)
  Receive Date: 20200924
  Receipt Date: 20200924
  Transmission Date: 20201103
  Serious: Yes (Other)
  Sender: FDA-Public Use
  Company Number: CA-CELLTRION INC.-2020CA026064

PATIENT

DRUGS (15)
  1. ATORVASTATIN [Concomitant]
     Active Substance: ATORVASTATIN
     Route: 065
  2. VITAMIN D [ERGOCALCIFEROL] [Concomitant]
     Active Substance: ERGOCALCIFEROL
     Route: 065
  3. CALCIUM [Concomitant]
     Active Substance: CALCIUM
     Route: 065
  4. MOMETASONE [Concomitant]
     Active Substance: MOMETASONE
     Route: 065
  5. BISOPROLOL [Concomitant]
     Active Substance: BISOPROLOL
     Route: 065
  6. METHYLPREDNISOLONE SODIUM SUCCINATE. [Concomitant]
     Active Substance: METHYLPREDNISOLONE SODIUM SUCCINATE
     Dosage: 100.0 UNK
     Route: 042
  7. TYLENOL [Concomitant]
     Active Substance: ACETAMINOPHEN
     Indication: PREMEDICATION
     Dosage: 650.0 MILLIGRAM
     Route: 048
  8. PREDNISONE. [Concomitant]
     Active Substance: PREDNISONE
     Route: 065
  9. RITUXIMAB (UNKNOWN) [Suspect]
     Active Substance: RITUXIMAB
     Dosage: UNK
     Route: 042
  10. ACETYLSALICYLIC ACID [Concomitant]
     Active Substance: ASPIRIN
     Route: 065
  11. PANTOPRAZOLE [Concomitant]
     Active Substance: PANTOPRAZOLE
     Route: 065
  12. RISEDRONATE [Concomitant]
     Active Substance: RISEDRONATE SODIUM
     Route: 065
  13. RITUXIMAB (UNKNOWN) [Suspect]
     Active Substance: RITUXIMAB
     Indication: MICROSCOPIC POLYANGIITIS
     Dosage: 1000.0 MILLIGRAM, 1 EVERY 2 WEEKS
     Route: 042
  14. BENADRYL [Concomitant]
     Active Substance: DIPHENHYDRAMINE HYDROCHLORIDE
     Dosage: 50.0 MILLIGRAM
     Route: 048
  15. SULFATRIM [Concomitant]
     Active Substance: SULFAMETHOXAZOLE\TRIMETHOPRIM
     Route: 065

REACTIONS (3)
  - Periarthritis [Unknown]
  - Off label use [Unknown]
  - Intentional product use issue [Unknown]
